FAERS Safety Report 14245583 (Version 1)
Quarter: 2017Q4

REPORT INFORMATION
  Report Type: Spontaneous
  Country: CH (occurrence: CH)
  Receive Date: 20171203
  Receipt Date: 20171203
  Transmission Date: 20180321
  Serious: Yes (Hospitalization)
  Sender: FDA-Public Use
  Company Number: CH-BAXTER-2017BAX039930

PATIENT
  Age: 12 Year
  Sex: Female
  Weight: 28 kg

DRUGS (58)
  1. UROMITEXAN 400 ML, L?SUNG ZUR INTRAVEN?SEN ANWENDUNG [Suspect]
     Active Substance: MESNA
     Dosage: DOSE ALSO REPORTED AS 400 MG/M2/DOSE, DAY 36
     Route: 042
     Dates: start: 20171010, end: 20171010
  2. ENDOXAN 1 G [Suspect]
     Active Substance: CYCLOPHOSPHAMIDE
     Indication: B PRECURSOR TYPE ACUTE LEUKAEMIA
     Route: 042
     Dates: start: 20170408, end: 20170523
  3. METHOTREXATE (METHOTREXATE SODIUM) [Suspect]
     Active Substance: METHOTREXATE SODIUM
     Dosage: 240+4860 MG, SINGLE DOSE
     Route: 042
     Dates: start: 20170717, end: 20170718
  4. METHOTREXATE (METHOTREXATE SODIUM) [Suspect]
     Active Substance: METHOTREXATE SODIUM
     Dosage: 535+4815 MG, SINGLE DOSE
     Route: 042
     Dates: start: 20170802, end: 20170803
  5. FORTECORTIN [Suspect]
     Active Substance: DEXAMETHASONE
     Route: 048
     Dates: start: 20170918, end: 20170923
  6. VINCRISTIN [Suspect]
     Active Substance: VINCRISTINE
     Dosage: DOSE ALSO REPORTED AS 1.5 MG/M2 PER DAY, DAY 8
     Route: 042
     Dates: start: 20170901, end: 20170901
  7. ADRIBLASTIN [Suspect]
     Active Substance: DOXORUBICIN HYDROCHLORIDE
     Dosage: DOSE ALSO REPORTED AS 30 MG/M2 PER DAY, DAY 22
     Route: 042
     Dates: start: 20170918, end: 20170918
  8. MERCAPTOPURIN [Suspect]
     Active Substance: MERCAPTOPURINE
     Indication: CHEMOTHERAPY
     Route: 048
     Dates: start: 20170408
  9. MERCAPTOPURIN [Suspect]
     Active Substance: MERCAPTOPURINE
     Route: 048
     Dates: start: 20170621
  10. MERCAPTOPURIN [Suspect]
     Active Substance: MERCAPTOPURINE
     Route: 048
     Dates: start: 20170717
  11. PREDNISON [Suspect]
     Active Substance: PREDNISONE
     Indication: PRODUCT USED FOR UNKNOWN INDICATION
     Dosage: 10 TO 20 MG, 1 TO 4 X PER DAY
     Route: 048
     Dates: start: 20170304, end: 20170331
  12. NOPIL [Suspect]
     Active Substance: SULFAMETHOXAZOLE\TRIMETHOPRIM
     Route: 048
     Dates: start: 20170927
  13. LEUCOVORIN. [Suspect]
     Active Substance: LEUCOVORIN
     Dosage: 5 DOSES, 16 MG, 16 MG, 32 MG, 32 MG, 32 MG
     Route: 042
     Dates: start: 20170804, end: 20170805
  14. METHOTREXATE (METHOTREXATE SODIUM) [Suspect]
     Active Substance: METHOTREXATE SODIUM
     Indication: B PRECURSOR TYPE ACUTE LEUKAEMIA
     Route: 037
     Dates: start: 20170306, end: 20170802
  15. METHOTREXATE (METHOTREXATE SODIUM) [Suspect]
     Active Substance: METHOTREXATE SODIUM
     Dosage: DAY 38 TO 45
     Route: 037
     Dates: start: 20171012, end: 20171020
  16. MEROPENEM. [Suspect]
     Active Substance: MEROPENEM
     Indication: PRODUCT USED FOR UNKNOWN INDICATION
     Route: 042
     Dates: start: 20171001, end: 20171006
  17. CYTARABIN [Suspect]
     Active Substance: CYTARABINE
     Dosage: DOSE ALSO REPORTED AS 75 MG/M2/DAY, DAY 45-46-47-48
     Route: 042
     Dates: start: 20171019, end: 20171022
  18. FORTECORTIN [Suspect]
     Active Substance: DEXAMETHASONE
     Indication: B PRECURSOR TYPE ACUTE LEUKAEMIA
     Dosage: DAY 1 TO 21, DOSE ALSO REPORTED AS 10 MG/M2 PER DAY
     Route: 048
     Dates: start: 20170828, end: 20170917
  19. VINCRISTIN [Suspect]
     Active Substance: VINCRISTINE
     Dosage: DOSE ALSO REPORTED AS 1.5 MG/M2 PER DAY, DAY 29
     Route: 042
     Dates: start: 20170925, end: 20170925
  20. LEUCOVORIN. [Suspect]
     Active Substance: LEUCOVORIN
     Indication: PRODUCT USED FOR UNKNOWN INDICATION
     Dosage: 9 DOSES, 30 MG, 48 MG, 32 MG, 48 MG, 48 MG, 48 MG, 16 MG, 16 MG, 16 MG
     Route: 042
     Dates: start: 20170621, end: 20170622
  21. LEUCOVORIN. [Suspect]
     Active Substance: LEUCOVORIN
     Dosage: 7 DOSES OF 16 MG
     Route: 042
     Dates: start: 20170705, end: 20170706
  22. FLUCONAZOL [Concomitant]
     Active Substance: FLUCONAZOLE
     Indication: PRODUCT USED FOR UNKNOWN INDICATION
     Route: 048
     Dates: start: 20170930, end: 20171001
  23. MIDAZOLAM [Concomitant]
     Active Substance: MIDAZOLAM HYDROCHLORIDE
     Indication: PRODUCT USED FOR UNKNOWN INDICATION
     Route: 065
  24. METHOTREXATE (METHOTREXATE SODIUM) [Suspect]
     Active Substance: METHOTREXATE SODIUM
     Dosage: 535+4815 MG, SINGLE DOSE
     Route: 042
     Dates: start: 20170619, end: 20170620
  25. ADRIBLASTIN [Suspect]
     Active Substance: DOXORUBICIN HYDROCHLORIDE
     Dosage: DOSE ALSO REPORTED AS 30 MG/M2 PER DAY, DAY 15
     Route: 042
     Dates: start: 20170908, end: 20170908
  26. PEG/L-ASPARAGINASE [Suspect]
     Active Substance: PEGASPARGASE
     Indication: B PRECURSOR TYPE ACUTE LEUKAEMIA
     Dosage: SINGLE DOSE
     Route: 042
     Dates: start: 20170315, end: 20170315
  27. MERCAPTOPURIN [Suspect]
     Active Substance: MERCAPTOPURINE
     Route: 048
     Dates: start: 20170703
  28. NOVALGIN [Suspect]
     Active Substance: METAMIZOLE SODIUM
     Indication: PRODUCT USED FOR UNKNOWN INDICATION
     Dosage: 1 TO 2X/DAY
     Route: 048
     Dates: start: 20171010, end: 20171010
  29. ONDANSETRON [Concomitant]
     Active Substance: ONDANSETRON
     Indication: PRODUCT USED FOR UNKNOWN INDICATION
     Dosage: 1 TO 3 X /DAY
     Route: 042
     Dates: start: 20171010, end: 20171011
  30. MORPHIN [Concomitant]
     Active Substance: MORPHINE
     Indication: SUPPORTIVE CARE
     Dosage: PATIENT CONTROLLED ANALGESIA (PCA)
     Route: 042
     Dates: start: 20170930, end: 20171007
  31. ZYLORIC [Concomitant]
     Active Substance: ALLOPURINOL
     Indication: PRODUCT USED FOR UNKNOWN INDICATION
     Route: 065
  32. CYTARABIN [Suspect]
     Active Substance: CYTARABINE
     Indication: B PRECURSOR TYPE ACUTE LEUKAEMIA
     Dosage: DOSE ALSO REPORTED AS 75 MG/M2/DAY, DAY 38-39-40-41
     Route: 042
     Dates: start: 20171012, end: 20171015
  33. VINCRISTIN [Suspect]
     Active Substance: VINCRISTINE
     Dosage: DOSE ALSO REPORTED AS 1.5 MG/M2 PER DAY, DAY 22
     Route: 042
     Dates: start: 20170918, end: 20170918
  34. ADRIBLASTIN [Suspect]
     Active Substance: DOXORUBICIN HYDROCHLORIDE
     Dosage: DOSE ALSO REPORTED AS 30 MG/M2 PER DAY, DAY 29
     Route: 042
     Dates: start: 20170925, end: 20170925
  35. PEG/L-ASPARAGINASE [Suspect]
     Active Substance: PEGASPARGASE
     Dosage: DOSE ALSO REPORTED AS 2500 IU/M2 PER DAY, DAY 8
     Route: 042
     Dates: start: 20170901, end: 20170901
  36. TAVEGYL [Suspect]
     Active Substance: CLEMASTINE FUMARATE
     Indication: PRODUCT USED FOR UNKNOWN INDICATION
     Dosage: INJEKTIONSLOESUNG
     Route: 042
     Dates: start: 20171002, end: 20171003
  37. LEUCOVORIN. [Suspect]
     Active Substance: LEUCOVORIN
     Dosage: 5 DOSES OF 16MG
     Route: 042
     Dates: start: 20170717, end: 20170720
  38. AMIKACIN [Concomitant]
     Active Substance: AMIKACIN
     Indication: PRODUCT USED FOR UNKNOWN INDICATION
     Route: 042
     Dates: start: 20170927, end: 20171001
  39. CLARITHROMYCIN. [Concomitant]
     Active Substance: CLARITHROMYCIN
     Indication: PRODUCT USED FOR UNKNOWN INDICATION
     Route: 065
  40. LAXOBERON [Concomitant]
     Active Substance: SODIUM PICOSULFATE
     Indication: PRODUCT USED FOR UNKNOWN INDICATION
     Route: 065
  41. METHOTREXATE (METHOTREXATE SODIUM) [Suspect]
     Active Substance: METHOTREXATE SODIUM
     Dosage: 530+4770 MG, SINGLE DOSE
     Route: 042
     Dates: start: 20170703, end: 20170704
  42. FORTAM [Concomitant]
     Active Substance: CEFTAZIDIME
     Indication: PRODUCT USED FOR UNKNOWN INDICATION
     Route: 042
     Dates: start: 20170927, end: 20171001
  43. OMEPRAZOL [Concomitant]
     Active Substance: OMEPRAZOLE
     Indication: PRODUCT USED FOR UNKNOWN INDICATION
     Route: 065
  44. ENDOXAN 1 G [Suspect]
     Active Substance: CYCLOPHOSPHAMIDE
     Dosage: DOSE ALSO REPORTED AS 1000 MG/M2/DAY, DAY 36
     Route: 042
     Dates: start: 20171010, end: 20171010
  45. LANVIS [Suspect]
     Active Substance: THIOGUANINE ANHYDROUS
     Indication: B PRECURSOR TYPE ACUTE LEUKAEMIA
     Dosage: DOSE ALSO REPORTED AS 60 MG/M2/DAY, DAY 36 TO 49
     Route: 048
     Dates: start: 20171009, end: 20171023
  46. AMPHOTERICIN B. [Suspect]
     Active Substance: AMPHOTERICIN B
     Indication: PRODUCT USED FOR UNKNOWN INDICATION
     Route: 042
     Dates: start: 20171002, end: 20171006
  47. ADRIBLASTIN [Suspect]
     Active Substance: DOXORUBICIN HYDROCHLORIDE
     Indication: B PRECURSOR TYPE ACUTE LEUKAEMIA
     Dosage: DOSE ALSO REPORTED AS 30 MG/M2 PER DAY, DAY 8
     Route: 042
     Dates: start: 20170901, end: 20170901
  48. DAUNORUBICIN [Suspect]
     Active Substance: DAUNORUBICIN
     Indication: CHEMOTHERAPY
     Dosage: SINGLE DOSE
     Route: 042
     Dates: start: 20170311, end: 20170311
  49. FUROSEMID [Concomitant]
     Active Substance: FUROSEMIDE
     Indication: PRODUCT USED FOR UNKNOWN INDICATION
     Route: 042
     Dates: start: 20171011, end: 20171011
  50. TRAMADOL. [Concomitant]
     Active Substance: TRAMADOL
     Indication: SUPPORTIVE CARE
     Route: 048
     Dates: start: 20170930, end: 20170930
  51. ESOMEPRAZOL [Concomitant]
     Active Substance: ESOMEPRAZOLE
     Indication: PRODUCT USED FOR UNKNOWN INDICATION
     Route: 065
  52. UROMITEXAN 400 ML, L?SUNG ZUR INTRAVEN?SEN ANWENDUNG [Suspect]
     Active Substance: MESNA
     Indication: B PRECURSOR TYPE ACUTE LEUKAEMIA
     Route: 042
     Dates: start: 20170523
  53. VINCRISTIN [Suspect]
     Active Substance: VINCRISTINE
     Indication: B PRECURSOR TYPE ACUTE LEUKAEMIA
     Route: 042
     Dates: start: 20170311, end: 20170311
  54. VINCRISTIN [Suspect]
     Active Substance: VINCRISTINE
     Dosage: DOSE ALSO REPORTED AS 1.5 MG/M2 PER DAY, DAY 15
     Route: 042
     Dates: start: 20170908, end: 20170908
  55. MERCAPTOPURIN [Suspect]
     Active Substance: MERCAPTOPURINE
     Route: 048
     Dates: start: 20170802
  56. NOPIL [Suspect]
     Active Substance: SULFAMETHOXAZOLE\TRIMETHOPRIM
     Indication: PRODUCT USED FOR UNKNOWN INDICATION
     Route: 048
     Dates: start: 20170915
  57. PARACETAMOL [Concomitant]
     Active Substance: ACETAMINOPHEN
     Indication: SUPPORTIVE CARE
     Dosage: ROUTE: IV OR ORAL
     Route: 065
     Dates: start: 20170926, end: 20171008
  58. NALOXON [Concomitant]
     Active Substance: NALOXONE HYDROCHLORIDE
     Indication: SUPPORTIVE CARE
     Route: 042
     Dates: start: 20170930, end: 20171007

REACTIONS (2)
  - Drug interaction [Recovered/Resolved]
  - Posterior reversible encephalopathy syndrome [Recovered/Resolved]

NARRATIVE: CASE EVENT DATE: 20171012
